FAERS Safety Report 18930490 (Version 1)
Quarter: 2021Q1

REPORT INFORMATION
  Report Type: Spontaneous
  Country: US (occurrence: US)
  Receive Date: 20210223
  Receipt Date: 20210223
  Transmission Date: 20210420
  Serious: Yes (Life-Threatening)
  Sender: FDA-Public Use
  Company Number: US-FRESENIUS KABI-FK202101732

PATIENT
  Age: 37 Year
  Sex: Male

DRUGS (2)
  1. LIDOCAINE (MANUFACTURER UNKNOWN) [Suspect]
     Active Substance: LIDOCAINE
     Indication: BACK PAIN
     Route: 008
  2. TRIAMCINOLONE [Suspect]
     Active Substance: TRIAMCINOLONE
     Indication: BACK PAIN
     Route: 008

REACTIONS (3)
  - Status epilepticus [Recovered/Resolved]
  - Cerebrovascular accident [Recovered/Resolved]
  - Incorrect route of product administration [Recovered/Resolved]
